FAERS Safety Report 7426695-6 (Version None)
Quarter: 2011Q2

REPORT INFORMATION
  Report Type: 
  Country: None (occurrence: None)
  Receive Date: 20110420
  Receipt Date: 20110401
  Transmission Date: 20111010
  Serious: Yes (Other)
  Sender: FDA-Public Use
  Company Number: DE-TEVA-269823GER

PATIENT
  Sex: Female
  Weight: 60.5 kg

DRUGS (1)
  1. TAMOXIFEN CITRATE [Suspect]
     Indication: BREAST CANCER FEMALE
     Dosage: 20 MILLIGRAM;
     Route: 048
     Dates: start: 20090501

REACTIONS (2)
  - RETINAL DISORDER [None]
  - BLINDNESS [None]
